FAERS Safety Report 12379224 (Version 2)
Quarter: 2016Q2

REPORT INFORMATION
  Report Type: Spontaneous
  Country: US (occurrence: US)
  Receive Date: 20160517
  Receipt Date: 20160615
  Transmission Date: 20160815
  Serious: Yes (Other)
  Sender: FDA-Public Use
  Company Number: US-JAZZ-2016-US-007716

PATIENT
  Age: 35 Year
  Sex: Female
  Weight: 81.18 kg

DRUGS (31)
  1. XYREM [Suspect]
     Active Substance: SODIUM OXYBATE
     Indication: CATAPLEXY
     Dosage: DOSE ADJUSTMENTS
     Route: 048
     Dates: start: 2015, end: 2015
  2. XYREM [Suspect]
     Active Substance: SODIUM OXYBATE
     Dosage: 4 G, FIRST DOSE
     Route: 048
  3. VITAMIN D3 [Concomitant]
     Active Substance: CHOLECALCIFEROL
  4. ZITHROMAX [Concomitant]
     Active Substance: AZITHROMYCIN DIHYDRATE
  5. EPIPEN [Concomitant]
     Active Substance: EPINEPHRINE
  6. EFFEXOR [Concomitant]
     Active Substance: VENLAFAXINE HYDROCHLORIDE
  7. PROAIR HFA [Concomitant]
     Active Substance: ALBUTEROL SULFATE
  8. PRISTIQ EXTENDED-RELEASE [Concomitant]
     Active Substance: DESVENLAFAXINE SUCCINATE
  9. MUCINEX FAST MAX SEVERE CONGESTION + COLD [Concomitant]
  10. ADDERALL [Concomitant]
     Active Substance: AMPHETAMINE ASPARTATE\AMPHETAMINE SULFATE\DEXTROAMPHETAMINE SACCHARATE\DEXTROAMPHETAMINE SULFATE
  11. EFFEXOR [Concomitant]
     Active Substance: VENLAFAXINE HYDROCHLORIDE
  12. DOCUSATE SODIUM. [Concomitant]
     Active Substance: DOCUSATE SODIUM
  13. KLONOPIN [Concomitant]
     Active Substance: CLONAZEPAM
  14. XOPENEX [Concomitant]
     Active Substance: LEVALBUTEROL HYDROCHLORIDE
  15. DIFLUCAN [Concomitant]
     Active Substance: FLUCONAZOLE
  16. XYREM [Suspect]
     Active Substance: SODIUM OXYBATE
     Dosage: 4 G, BID
     Route: 048
     Dates: start: 201601
  17. TRIAMCINOLONE [Concomitant]
     Active Substance: TRIAMCINOLONE
  18. ALBUTEROL SULFATE. [Concomitant]
     Active Substance: ALBUTEROL SULFATE
  19. NUVIGIL [Concomitant]
     Active Substance: ARMODAFINIL
  20. XYREM [Suspect]
     Active Substance: SODIUM OXYBATE
     Dosage: 3 G, SECOND DOSE
     Route: 048
  21. QSYMIA [Concomitant]
     Active Substance: PHENTERMINE HYDROCHLORIDE\TOPIRAMATE
  22. XYREM [Suspect]
     Active Substance: SODIUM OXYBATE
     Indication: NARCOLEPSY
     Dosage: 2.25 G, BID
     Route: 048
     Dates: start: 201501, end: 201501
  23. BACTRIM [Concomitant]
     Active Substance: SULFAMETHOXAZOLE\TRIMETHOPRIM
  24. MUCINEX [Concomitant]
     Active Substance: GUAIFENESIN
  25. PROPRANOLOL [Concomitant]
     Active Substance: PROPRANOLOL\PROPRANOLOL HYDROCHLORIDE
  26. FLONASE [Concomitant]
     Active Substance: FLUTICASONE PROPIONATE
  27. MUCINEX [Concomitant]
     Active Substance: GUAIFENESIN
  28. ZITHROMAX [Concomitant]
     Active Substance: AZITHROMYCIN DIHYDRATE
  29. ARMOUR THYROID [Concomitant]
     Active Substance: THYROID, PORCINE
  30. SINGULAIR [Concomitant]
     Active Substance: MONTELUKAST SODIUM
  31. ZOFRAN [Concomitant]
     Active Substance: ONDANSETRON HYDROCHLORIDE

REACTIONS (6)
  - Lower respiratory tract infection [Not Recovered/Not Resolved]
  - Vulvovaginal mycotic infection [Unknown]
  - Insomnia [Not Recovered/Not Resolved]
  - Upper respiratory tract infection [Not Recovered/Not Resolved]
  - Sinusitis [Unknown]
  - Weight decreased [Unknown]

NARRATIVE: CASE EVENT DATE: 201604
